FAERS Safety Report 5606858-2 (Version None)
Quarter: 2008Q1

REPORT INFORMATION
  Report Type: 
  Country: None (occurrence: None)
  Receive Date: 20080129
  Receipt Date: 20080104
  Transmission Date: 20080703
  Serious: No
  Sender: FDA-Public Use
  Company Number: US-BOEHRINGER INGELHEIM GMBH, GERMANY-2007-BP-25654BP

PATIENT
  Age: 45 Year
  Sex: Female

DRUGS (10)
  1. MOBIC [Suspect]
     Indication: OSTEOARTHRITIS
     Route: 048
     Dates: start: 20071001
  2. LITHIUM CARBONATE [Concomitant]
     Indication: BIPOLAR DISORDER
  3. LAMICTAL [Concomitant]
     Indication: BIPOLAR DISORDER
  4. MACRODANTIN [Concomitant]
     Indication: URINARY TRACT INFECTION
  5. HYOSCYAMINE SULFATE [Concomitant]
     Indication: BLADDER DISORDER
  6. TRAZOSINE [Concomitant]
     Indication: HYPERTENSION
  7. ATENOLOL [Concomitant]
     Indication: HYPERTENSION
  8. AMBIEN [Concomitant]
     Indication: INSOMNIA
  9. FOSAMAX [Concomitant]
  10. MINIPRESS [Concomitant]

REACTIONS (5)
  - ARTHRALGIA [None]
  - HEADACHE [None]
  - INCORRECT DOSE ADMINISTERED [None]
  - MUSCULOSKELETAL PAIN [None]
  - NECK PAIN [None]
